FAERS Safety Report 12285663 (Version 1)
Quarter: 2016Q2

REPORT INFORMATION
  Report Type: Report from Study
  Country: NL (occurrence: NL)
  Receive Date: 20160420
  Receipt Date: 20160420
  Transmission Date: 20160815
  Serious: Yes (Death, Life-Threatening, Other)
  Sender: FDA-Public Use
  Company Number: NL-AMGEN-NLDSL2016036256

PATIENT
  Age: 66 Year
  Sex: Male

DRUGS (1)
  1. ARANESP [Suspect]
     Active Substance: DARBEPOETIN ALFA
     Indication: ANAEMIA
     Dosage: 60 MUG (200 MCG/ML 0.3 ML), Q2WK
     Route: 058

REACTIONS (2)
  - Terminal state [Fatal]
  - Hospice care [Unknown]

NARRATIVE: CASE EVENT DATE: 20160318
